FAERS Safety Report 8596531 (Version 3)
Quarter: 2013Q2

REPORT INFORMATION
  Report Type: Spontaneous
  Country: US (occurrence: US)
  Receive Date: 20120605
  Receipt Date: 20130621
  Transmission Date: 20140414
  Serious: No
  Sender: FDA-Public Use
  Company Number: US-ASTRAZENECA-2012SE35489

PATIENT
  Age: 20522 Day
  Sex: Female
  Weight: 106.6 kg

DRUGS (15)
  1. NEXIUM [Suspect]
     Indication: GASTROOESOPHAGEAL REFLUX DISEASE
     Route: 048
     Dates: start: 200601
  2. NEXIUM [Suspect]
     Indication: GASTROOESOPHAGEAL REFLUX DISEASE
     Route: 048
     Dates: start: 200602
  3. PRILOSEC OTC [Suspect]
     Indication: GASTROOESOPHAGEAL REFLUX DISEASE
     Route: 048
     Dates: start: 2005, end: 200601
  4. TUMS [Concomitant]
     Dosage: 750, OCCASIONALLY WHEN NEEDED.
  5. CELEBREX [Concomitant]
     Indication: ARTHRITIS
  6. LYRICA [Concomitant]
     Indication: NEUROPATHY PERIPHERAL
  7. ZETIA [Concomitant]
     Indication: BLOOD CHOLESTEROL ABNORMAL
  8. ZAROXOLYN [Concomitant]
     Indication: FLUID RETENTION
  9. LASIX [Concomitant]
     Indication: FLUID RETENTION
  10. POTASSIUM [Concomitant]
     Indication: FLUID RETENTION
  11. ASPIRIN [Concomitant]
     Indication: CARDIAC DISORDER
     Dosage: LOW DOSE
  12. VITAMIN C [Concomitant]
     Indication: GENERAL PHYSICAL HEALTH DETERIORATION
  13. PROMETHAZINE [Concomitant]
  14. CALCIUM WITH VITAMIN D [Concomitant]
  15. MULTI VITAMIN [Concomitant]

REACTIONS (8)
  - Osteoporosis [Unknown]
  - Bone density decreased [Unknown]
  - Clavicle fracture [Unknown]
  - Carpal tunnel syndrome [Unknown]
  - Gastroenteritis viral [Unknown]
  - Dehydration [Unknown]
  - Gout [Unknown]
  - Ankylosing spondylitis [Unknown]
